FAERS Safety Report 9778158 (Version 2)
Quarter: 2013Q4

REPORT INFORMATION
  Report Type: Spontaneous
  Country: US (occurrence: US)
  Receive Date: 20131223
  Receipt Date: 20131226
  Transmission Date: 20140711
  Serious: No
  Sender: FDA-Public Use
  Company Number: US-JNJFOC-20131205466

PATIENT
  Age: 37 Year
  Sex: Male
  Weight: 111.13 kg

DRUGS (7)
  1. INVEGA SUSTENNA [Suspect]
     Indication: SCHIZOPHRENIA
     Route: 030
     Dates: start: 2013
  2. ZOLOFT [Concomitant]
     Indication: DEPRESSION
     Route: 048
  3. ABILIFY [Concomitant]
     Indication: SCHIZOPHRENIA
     Route: 048
  4. NIACIN [Concomitant]
     Indication: BLOOD CHOLESTEROL INCREASED
     Route: 065
  5. TRICOR [Concomitant]
     Indication: BLOOD CHOLESTEROL INCREASED
     Route: 065
  6. ZOCOR [Concomitant]
     Indication: BLOOD CHOLESTEROL INCREASED
     Route: 065
  7. MIRALAX [Concomitant]
     Indication: CONSTIPATION
     Route: 065

REACTIONS (3)
  - Necrosis ischaemic [Not Recovered/Not Resolved]
  - Drug ineffective [Unknown]
  - Drug dose omission [Unknown]
